FAERS Safety Report 16395466 (Version 1)
Quarter: 2019Q2

REPORT INFORMATION
  Report Type: Spontaneous
  Country: US (occurrence: US)
  Receive Date: 20190430
  Receipt Date: 20190430
  Transmission Date: 20190711
  Serious: No
  Sender: FDA-Public Use
  Company Number: None

PATIENT
  Age: 58 Year
  Sex: Female
  Weight: 63.96 kg

DRUGS (1)
  1. METHOTREXATE 2.5 MG TABLET, [Suspect]
     Active Substance: METHOTREXATE SODIUM
     Indication: RHEUMATOID ARTHRITIS
     Dosage: ON THE SAME DAY EACH WEEK AS DIRECTED
     Route: 048
     Dates: start: 201807

REACTIONS (4)
  - Injection site reaction [None]
  - Pneumonia [None]
  - Joint swelling [None]
  - Headache [None]
